FAERS Safety Report 5934077-9 (Version None)
Quarter: 2008Q4

REPORT INFORMATION
  Report Type: 
  Country: None (occurrence: None)
  Receive Date: 20081029
  Receipt Date: 20081027
  Transmission Date: 20090506
  Serious: Yes (Hospitalization)
  Sender: FDA-Public Use
  Company Number: US-MERCK-0805USA05962

PATIENT
  Age: 78 Year
  Sex: Female
  Weight: 70 kg

DRUGS (15)
  1. INVANZ [Suspect]
     Indication: URINARY TRACT INFECTION
     Route: 042
     Dates: start: 20080219, end: 20080302
  2. SINEMET [Concomitant]
     Route: 048
  3. PRILOSEC [Concomitant]
     Route: 048
  4. GLIPIZIDE [Concomitant]
     Route: 065
  5. GLIPIZIDE [Concomitant]
     Route: 065
  6. CELEXA [Concomitant]
     Route: 065
  7. JANUVIA [Concomitant]
     Route: 048
  8. ZOCOR [Concomitant]
     Route: 048
  9. COUMADIN [Concomitant]
     Route: 065
  10. COUMADIN [Concomitant]
     Route: 065
  11. GLUCOPHAGE [Concomitant]
     Route: 065
  12. NORVASC [Concomitant]
     Route: 065
  13. IMDUR [Concomitant]
     Route: 065
  14. DIOVAN [Concomitant]
     Route: 065
  15. ASPIRIN [Concomitant]
     Route: 065

REACTIONS (12)
  - ABNORMAL DREAMS [None]
  - ACTIVITIES OF DAILY LIVING IMPAIRED [None]
  - AGITATION [None]
  - ASTHENIA [None]
  - CONVULSION [None]
  - DELIRIUM [None]
  - DIARRHOEA [None]
  - DIZZINESS [None]
  - HALLUCINATION [None]
  - NAUSEA [None]
  - PSYCHOTIC DISORDER [None]
  - SYNCOPE [None]
